FAERS Safety Report 7722752-5 (Version None)
Quarter: 2011Q3

REPORT INFORMATION
  Report Type: 
  Country: None (occurrence: None)
  Receive Date: 20110831
  Receipt Date: 20110818
  Transmission Date: 20111222
  Serious: Yes (Other)
  Sender: FDA-Public Use
  Company Number: GB-MYLANLABS-2011S1017226

PATIENT
  Age: 47 Year
  Sex: Male

DRUGS (10)
  1. CLOZAPINE [Suspect]
     Indication: SCHIZOPHRENIA
     Dates: start: 20090728
  2. CLOZAPINE [Suspect]
  3. CLOZAPINE [Suspect]
  4. CLOZAPINE [Suspect]
  5. CLOZAPINE [Suspect]
     Indication: OBSESSIVE-COMPULSIVE DISORDER
     Dates: start: 20090728
  6. CLOZAPINE [Suspect]
  7. CLOZAPINE [Suspect]
  8. FLUOXETINE [Suspect]
     Indication: SCHIZOPHRENIA
  9. CLOZAPINE [Suspect]
  10. FLUOXETINE [Suspect]
     Indication: OBSESSIVE-COMPULSIVE DISORDER

REACTIONS (9)
  - ABDOMINAL PAIN [None]
  - BLOOD ALKALINE PHOSPHATASE INCREASED [None]
  - DECREASED APPETITE [None]
  - DIARRHOEA [None]
  - HYPERHIDROSIS [None]
  - WEIGHT DECREASED [None]
  - LETHARGY [None]
  - DRUG INTERACTION [None]
  - COUGH [None]
